FAERS Safety Report 24944081 (Version 4)
Quarter: 2025Q1

REPORT INFORMATION
  Report Type: Spontaneous
  Country: IR (occurrence: IR)
  Receive Date: 20250207
  Receipt Date: 20250307
  Transmission Date: 20250409
  Serious: Yes (Death, Hospitalization)
  Sender: BIOGEN
  Company Number: IR-BIOGEN-2025BI01297829

PATIENT
  Age: 42 Year
  Sex: Female

DRUGS (1)
  1. TYSABRI [Suspect]
     Active Substance: NATALIZUMAB
     Indication: Multiple sclerosis
     Route: 050
     Dates: start: 2017, end: 20241216

REACTIONS (4)
  - Disseminated intravascular coagulation [Fatal]
  - Septic shock [Unknown]
  - Multiple sclerosis [Unknown]
  - Prescribed underdose [Unknown]

NARRATIVE: CASE EVENT DATE: 20250129
